FAERS Safety Report 23600257 (Version 1)
Quarter: 2024Q1

REPORT INFORMATION
  Report Type: Spontaneous
  Country: US (occurrence: None)
  Receive Date: 20240305
  Receipt Date: 20240305
  Transmission Date: 20240410
  Serious: Yes (Other)
  Sender: FDA-Public Use
  Company Number: None

PATIENT
  Age: 76 Year
  Sex: Female

DRUGS (8)
  1. AMBRISENTAN [Suspect]
     Active Substance: AMBRISENTAN
     Indication: Pulmonary hypertension
     Dosage: 5MG QD ORAL
     Route: 048
     Dates: start: 20231031, end: 20240110
  2. SILDENAFIL [Concomitant]
     Active Substance: SILDENAFIL
  3. METOPROLOL [Concomitant]
     Active Substance: METOPROLOL
  4. POTASSIUM CHLORIDE [Concomitant]
     Active Substance: POTASSIUM CHLORIDE
  5. FUROSEMIDE [Concomitant]
     Active Substance: FUROSEMIDE
  6. ELIQUIS [Concomitant]
     Active Substance: APIXABAN
  7. FISH OIL [Concomitant]
     Active Substance: FISH OIL
  8. CALCIUM CARBONATE-VIT D2 [Concomitant]

REACTIONS (4)
  - Headache [None]
  - Sinus congestion [None]
  - Palpitations [None]
  - Weight increased [None]

NARRATIVE: CASE EVENT DATE: 20240110
